FAERS Safety Report 8511573-1 (Version None)
Quarter: 2012Q2

REPORT INFORMATION
  Report Type: 
  Country: None (occurrence: None)
  Receive Date: 20120629
  Receipt Date: 20110311
  Transmission Date: 20120825
  Serious: Yes (Hospitalization)
  Sender: FDA-Public Use
  Company Number: JP-ALCON-1185399

PATIENT
  Age: 59 Year
  Sex: Male

DRUGS (4)
  1. TIMOLOL MALEATE [Suspect]
     Indication: OCULAR HYPERTENSION
     Dosage: 1, GTT DROP(S), 2, 1, DAYS OPHTHALMIC
     Route: 047
     Dates: start: 20101112, end: 20111103
  2. BIOFERMIN TABLET [Concomitant]
  3. RHYTHMY [Concomitant]
  4. BRINZOLAMIDE:/BRINZOLAMIDE [Suspect]
     Indication: OCULAR HYPERTENSION
     Dosage: 1, GTT DROP(S), 2, 1, DAYS OPHTHALMIC
     Route: 047
     Dates: start: 20101112, end: 20111103

REACTIONS (1)
  - PRINZMETAL ANGINA [None]
